FAERS Safety Report 10788204 (Version 1)
Quarter: 2015Q1

REPORT INFORMATION
  Report Type: Spontaneous
  Country: US (occurrence: US)
  Receive Date: 20150212
  Receipt Date: 20150212
  Transmission Date: 20150721
  Serious: Yes (Hospitalization)
  Sender: FDA-Public Use
  Company Number: US-ROCHE-1536304

PATIENT
  Age: 52 Year
  Sex: Male

DRUGS (6)
  1. LEDIPASVIR/SOFOSBUVIR [Suspect]
     Active Substance: LEDIPASVIR\SOFOSBUVIR
     Indication: HEPATITIS C
     Dosage: 90/400 MG
     Route: 048
     Dates: start: 20150117
  2. RIBAVIRIN. [Concomitant]
     Active Substance: RIBAVIRIN
     Route: 065
  3. INTERFERON ALFA-2A [Concomitant]
     Active Substance: INTERFERON ALFA-2A
     Route: 065
  4. SOVALDI [Concomitant]
     Active Substance: SOFOSBUVIR
  5. VALIUM [Suspect]
     Active Substance: DIAZEPAM
     Indication: PRODUCT USED FOR UNKNOWN INDICATION
     Route: 065
  6. OLYSIO [Concomitant]
     Active Substance: SIMEPREVIR

REACTIONS (1)
  - Suicide attempt [Unknown]
